FAERS Safety Report 10043616 (Version 2)
Quarter: 2014Q2

REPORT INFORMATION
  Report Type: Report from Study
  Country: CA (occurrence: CA)
  Receive Date: 20140328
  Receipt Date: 20140430
  Transmission Date: 20141212
  Serious: Yes (Other)
  Sender: FDA-Public Use
  Company Number: CA-JNJFOC-20140307177

PATIENT
  Age: 60 Year
  Sex: Female

DRUGS (1)
  1. REMICADE [Suspect]
     Indication: CROHN^S DISEASE
     Dosage: ONCE EVERY 8 ^UNITS UNSPECIFIED^
     Route: 042
     Dates: start: 20080227

REACTIONS (2)
  - Cardiac operation [Recovering/Resolving]
  - Bronchitis [Unknown]
